FAERS Safety Report 5271831-3 (Version None)
Quarter: 2007Q1

REPORT INFORMATION
  Report Type: 
  Country: None (occurrence: None)
  Receive Date: 20070316
  Receipt Date: 20070301
  Transmission Date: 20070707
  Serious: Yes (Death, Life-Threatening)
  Sender: FDA-Public Use
  Company Number: 2007JP000398

PATIENT
  Age: 79 Year
  Sex: Female
  Weight: 50.9 kg

DRUGS (13)
  1. FUNGUARD (MICAFUNGIN) INJECTION [Suspect]
     Indication: FUNGAEMIA
     Dosage: 100 MG, UID/QD, IV DRIP
     Route: 041
     Dates: start: 20070121, end: 20070124
  2. CEFTAZIDIME [Concomitant]
  3. ATELEC (CILNIDIPINE) [Concomitant]
  4. ALDACTONE-A TABLET [Concomitant]
  5. TAKEPRON (LANSOPRAZOLE) ORODISPERSIBLE CR TABLET [Concomitant]
  6. VFEND (VORICONAZOLE) INJECTION [Concomitant]
  7. MEROPEN (MEROPENEM) INJECTION [Concomitant]
  8. NEUPOGEN [Concomitant]
  9. LASTET (ETOPOSIDE) INJECTION [Concomitant]
  10. ADRIACIN (DOXORUBICIN HYDROCHLORIDE) INJECTION [Concomitant]
  11. ONCOVIN (VINCRISTINE SULFATE) INJECTION [Concomitant]
  12. PREDNISOLONE [Concomitant]
  13. KYTRIL (GRANISETRON) INJECTION [Concomitant]

REACTIONS (6)
  - HEPATIC FAILURE [None]
  - HYPERVENTILATION [None]
  - HYPOGLYCAEMIA [None]
  - LIVER DISORDER [None]
  - METABOLIC ACIDOSIS [None]
  - RENAL DISORDER [None]
